FAERS Safety Report 21078952 (Version 4)
Quarter: 2023Q4

REPORT INFORMATION
  Report Type: Report from Study
  Country: JP (occurrence: JP)
  Receive Date: 20220713
  Receipt Date: 20231030
  Transmission Date: 20240110
  Serious: Yes (Life-Threatening, Hospitalization, Other)
  Sender: FDA-Public Use
  Company Number: JP-TAKEDA-2022TJP048702

PATIENT
  Age: 1 Year
  Sex: Male
  Weight: 4.25 kg

DRUGS (8)
  1. TEDUGLUTIDE [Suspect]
     Active Substance: TEDUGLUTIDE
     Indication: Short-bowel syndrome
     Dosage: 0.05 MILLIGRAM/KILOGRAM, QD
     Route: 058
     Dates: start: 20220207, end: 20220621
  2. TEDUGLUTIDE [Suspect]
     Active Substance: TEDUGLUTIDE
     Indication: Short-bowel syndrome
     Dosage: 0.05 MILLIGRAM/KILOGRAM, QD
     Route: 058
     Dates: start: 20220207, end: 20220621
  3. TEDUGLUTIDE [Suspect]
     Active Substance: TEDUGLUTIDE
     Indication: Short-bowel syndrome
     Dosage: 0.05 MILLIGRAM/KILOGRAM, QD
     Route: 058
     Dates: start: 20220207, end: 20220621
  4. TEDUGLUTIDE [Suspect]
     Active Substance: TEDUGLUTIDE
     Indication: Short-bowel syndrome
     Dosage: 0.05 MILLIGRAM/KILOGRAM, QD
     Route: 058
     Dates: start: 20220207, end: 20220621
  5. TEDUGLUTIDE [Suspect]
     Active Substance: TEDUGLUTIDE
     Dosage: UNK MILLIGRAM/KILOGRAM, QD
     Route: 058
     Dates: start: 20220711
  6. TEDUGLUTIDE [Suspect]
     Active Substance: TEDUGLUTIDE
     Dosage: UNK MILLIGRAM/KILOGRAM, QD
     Route: 058
     Dates: start: 20220711
  7. TEDUGLUTIDE [Suspect]
     Active Substance: TEDUGLUTIDE
     Dosage: UNK MILLIGRAM/KILOGRAM, QD
     Route: 058
     Dates: start: 20220711
  8. TEDUGLUTIDE [Suspect]
     Active Substance: TEDUGLUTIDE
     Dosage: UNK MILLIGRAM/KILOGRAM, QD
     Route: 058
     Dates: start: 20220711

REACTIONS (7)
  - Abdominal distension [Recovered/Resolved]
  - Shock haemorrhagic [Recovered/Resolved]
  - Melaena [Recovered/Resolved]
  - Haematochezia [Unknown]
  - Generalised oedema [Recovered/Resolved]
  - Inflammation [Unknown]
  - Complication associated with device [Unknown]

NARRATIVE: CASE EVENT DATE: 20220209
